FAERS Safety Report 18874406 (Version 1)
Quarter: 2021Q1

REPORT INFORMATION
  Report Type: Report from Study
  Country: US (occurrence: US)
  Receive Date: 20210210
  Receipt Date: 20210210
  Transmission Date: 20210420
  Serious: Yes (Death, Other)
  Sender: FDA-Public Use
  Company Number: US-SUN PHARMACEUTICAL INDUSTRIES LTD-2021R1-279591

PATIENT
  Age: 18 Year
  Sex: Male

DRUGS (4)
  1. LOPERAMIDE [Suspect]
     Active Substance: LOPERAMIDE
     Indication: PRODUCT USED FOR UNKNOWN INDICATION
     Route: 065
  2. DEXTROMETHORPHAN [Suspect]
     Active Substance: DEXTROMETHORPHAN
     Indication: PRODUCT USED FOR UNKNOWN INDICATION
     Route: 065
  3. PROPYLHEXEDRINE [Suspect]
     Active Substance: PROPYLHEXEDRINE
     Indication: PRODUCT USED FOR UNKNOWN INDICATION
     Route: 065
  4. FENTANYL. [Suspect]
     Active Substance: FENTANYL
     Indication: PRODUCT USED FOR UNKNOWN INDICATION
     Route: 065

REACTIONS (9)
  - Tachycardia [Fatal]
  - Depressed level of consciousness [Fatal]
  - Anion gap [Fatal]
  - Acute kidney injury [Fatal]
  - Hypotension [Fatal]
  - Pneumonia aspiration [Fatal]
  - Hyperreflexia [Fatal]
  - Respiratory depression [Fatal]
  - Metabolic acidosis [Fatal]
